FAERS Safety Report 9132147 (Version 1)
Quarter: 2013Q1

REPORT INFORMATION
  Report Type: Spontaneous
  Country: US (occurrence: US)
  Receive Date: 20130107
  Receipt Date: 20130107
  Transmission Date: 20140127
  Serious: No
  Sender: FDA-Public Use
  Company Number: US-B.I. PHARMACEUTICALS,INC./RIDGEFIELD-2012-BI-04250BP

PATIENT
  Age: 65 None
  Sex: Female
  Weight: 104 kg

DRUGS (2)
  1. PRADAXA [Suspect]
     Indication: ATRIAL FIBRILLATION
     Dosage: 300 MG
     Route: 048
     Dates: start: 201012
  2. SOLUMEDROL [Concomitant]
     Indication: BASEDOW^S DISEASE
     Route: 042
     Dates: start: 20121213

REACTIONS (2)
  - Headache [Not Recovered/Not Resolved]
  - Infusion site haemorrhage [Recovered/Resolved]
